FAERS Safety Report 6176913-X (Version None)
Quarter: 2009Q2

REPORT INFORMATION
  Report Type: 
  Country: None (occurrence: None)
  Receive Date: 20090501
  Receipt Date: 20090417
  Transmission Date: 20091009
  Serious: Yes (Other)
  Sender: FDA-Public Use
  Company Number: US-ROCHE-628215

PATIENT
  Sex: Male

DRUGS (1)
  1. CELLCEPT [Suspect]
     Indication: TRANSPLANT
     Route: 065

REACTIONS (2)
  - ILEOSTOMY [None]
  - POSTOPERATIVE WOUND INFECTION [None]
